FAERS Safety Report 10614426 (Version 2)
Quarter: 2014Q4

REPORT INFORMATION
  Report Type: Spontaneous
  Country: DE (occurrence: DE)
  Receive Date: 20141129
  Receipt Date: 20141129
  Transmission Date: 20150529
  Serious: Yes (Hospitalization)
  Sender: FDA-Public Use
  Company Number: DE-AUROBINDO-AUR-APL-2014-12209

PATIENT
  Age: 77 Year
  Sex: Male

DRUGS (9)
  1. LAMOTRIGINE. [Suspect]
     Active Substance: LAMOTRIGINE
     Dosage: 25 MG, ONCE A DAY
     Route: 048
     Dates: start: 20140702, end: 20140708
  2. LEXOTANIL 6 [Concomitant]
     Indication: PRODUCT USED FOR UNKNOWN INDICATION
     Dosage: 4.5, UNK
     Route: 065
     Dates: start: 201310, end: 20140608
  3. LAMOTRIGINE. [Suspect]
     Active Substance: LAMOTRIGINE
     Dosage: 100 MG, ONCE A DAY
     Route: 048
     Dates: start: 20140612, end: 20140619
  4. LAMOTRIGINE. [Suspect]
     Active Substance: LAMOTRIGINE
     Dosage: 50 MG, ONCE A DAY
     Route: 048
     Dates: start: 20140626, end: 20140701
  5. LAMOTRIGINE. [Suspect]
     Active Substance: LAMOTRIGINE
     Indication: PRODUCT USED FOR UNKNOWN INDICATION
     Dosage: 25-125 MG,  ONCE A DAY
     Route: 048
     Dates: start: 20131201, end: 20140611
  6. LEXOTANIL 6 [Concomitant]
     Dosage: 1.5, UNK
     Route: 065
     Dates: start: 20140615, end: 20140625
  7. LEXOTANIL 6 [Concomitant]
     Dosage: 3, UNK
     Route: 065
     Dates: start: 20140609, end: 20140614
  8. MARCUMAR [Concomitant]
     Active Substance: PHENPROCOUMON
     Indication: PRODUCT USED FOR UNKNOWN INDICATION
     Dosage: NACH INR
     Route: 065
     Dates: start: 2013
  9. LAMOTRIGINE. [Suspect]
     Active Substance: LAMOTRIGINE
     Dosage: 75 MG, ONCE A DAY
     Route: 048
     Dates: start: 20140620, end: 20140625

REACTIONS (4)
  - Grimacing [Unknown]
  - Social problem [Unknown]
  - Dyskinesia [Recovering/Resolving]
  - Stress [Unknown]

NARRATIVE: CASE EVENT DATE: 20131230
